FAERS Safety Report 14893532 (Version 1)
Quarter: 2018Q2

REPORT INFORMATION
  Report Type: Report from Study
  Country: US (occurrence: US)
  Receive Date: 20180514
  Receipt Date: 20180514
  Transmission Date: 20180711
  Serious: Yes (Other)
  Sender: FDA-Public Use
  Company Number: US-SHIRE-US201816665

PATIENT
  Sex: Female

DRUGS (1)
  1. FIRAZYR [Suspect]
     Active Substance: ICATIBANT ACETATE
     Indication: PRODUCT USED FOR UNKNOWN INDICATION
     Dosage: 30 MG,3ML
     Route: 058
     Dates: start: 20140722

REACTIONS (2)
  - Cardiac valve disease [Recovering/Resolving]
  - Diverticulitis [Recovering/Resolving]
